FAERS Safety Report 9661519 (Version 2)
Quarter: 2013Q4

REPORT INFORMATION
  Report Type: Spontaneous
  Country: US (occurrence: US)
  Receive Date: 20131031
  Receipt Date: 20131031
  Transmission Date: 20140711
  Serious: No
  Sender: FDA-Public Use
  Company Number: US-PURDUE-USA-2010-0051490

PATIENT
  Sex: Male

DRUGS (2)
  1. OXYCONTIN (NDA 22-272) [Suspect]
     Indication: PAIN
     Dosage: 80 MG, TID
     Dates: start: 2009
  2. OXYCONTIN (NDA 22-272) [Suspect]
     Dosage: 40 MG, TID
     Dates: start: 2009

REACTIONS (7)
  - Medication residue present [Recovered/Resolved]
  - Pruritus [Recovered/Resolved]
  - Therapeutic response delayed [Unknown]
  - Drug effect decreased [Recovered/Resolved]
  - Diarrhoea [Recovered/Resolved]
  - Abdominal discomfort [Recovered/Resolved]
  - Drug withdrawal syndrome [Recovered/Resolved]
